FAERS Safety Report 24644491 (Version 2)
Quarter: 2024Q4

REPORT INFORMATION
  Report Type: Spontaneous
  Country: BR (occurrence: BR)
  Receive Date: 20241121
  Receipt Date: 20241203
  Transmission Date: 20250115
  Serious: Yes (Life-Threatening, Other)
  Sender: NOVO NORDISK
  Company Number: BR-NOVOPROD-1315052

PATIENT
  Age: 36 Year
  Sex: Female

DRUGS (1)
  1. OZEMPIC [Suspect]
     Active Substance: SEMAGLUTIDE
     Indication: Product used for unknown indication
     Dosage: UNK
     Dates: start: 202410

REACTIONS (17)
  - Near death experience [Unknown]
  - Hyperhidrosis [Unknown]
  - Tremor [Unknown]
  - Palpitations [Unknown]
  - Dyspnoea [Unknown]
  - Chills [Unknown]
  - Feeling hot [Unknown]
  - Chest discomfort [Unknown]
  - Head discomfort [Unknown]
  - Headache [Unknown]
  - Dizziness [Unknown]
  - Rash [Unknown]
  - Dizziness [Unknown]
  - Counterfeit product administered [Unknown]
  - Stress [Unknown]
  - Anxiety [Unknown]
  - Nausea [Unknown]

NARRATIVE: CASE EVENT DATE: 20240101
